FAERS Safety Report 16090743 (Version 1)
Quarter: 2019Q1

REPORT INFORMATION
  Report Type: Report from Study
  Country: US (occurrence: US)
  Receive Date: 20190319
  Receipt Date: 20190319
  Transmission Date: 20190418
  Serious: Yes (Death)
  Sender: FDA-Public Use
  Company Number: US-ACTELION-A-US2016-133237

PATIENT
  Age: 52 Year
  Sex: Male
  Weight: 58.05 kg

DRUGS (8)
  1. ORENITRAM [Suspect]
     Active Substance: TREPROSTINIL
     Indication: PRODUCT USED FOR UNKNOWN INDICATION
     Dosage: 1.125 MG, UNK
     Route: 065
  2. METOLAZONE. [Concomitant]
     Active Substance: METOLAZONE
  3. ORENITRAM [Suspect]
     Active Substance: TREPROSTINIL
     Dosage: 1 MG, UNK
     Route: 065
  4. OPSUMIT [Suspect]
     Active Substance: MACITENTAN
     Indication: PULMONARY ARTERIAL HYPERTENSION
     Dosage: 10 MG, QD
     Route: 048
     Dates: start: 20151118
  5. STEROIDS [Concomitant]
     Active Substance: UNSPECIFIED INGREDIENT
  6. OPSUMIT [Suspect]
     Active Substance: MACITENTAN
     Dosage: 10 MG, QD
     Route: 048
     Dates: start: 20151118
  7. LASIX [Concomitant]
     Active Substance: FUROSEMIDE
     Dosage: 40 MG, UNK
  8. LISINOPRIL + HIDROCLOROTIAZIDA [Concomitant]
     Active Substance: HYDROCHLOROTHIAZIDE\LISINOPRIL

REACTIONS (32)
  - Weight increased [Unknown]
  - Cough [Unknown]
  - Condition aggravated [Unknown]
  - Blood pressure increased [Unknown]
  - Chest pain [Unknown]
  - Pulmonary fibrosis [Unknown]
  - Abdominal distension [Unknown]
  - Pulmonary arterial hypertension [Unknown]
  - Cardiac failure chronic [Unknown]
  - Abdominal discomfort [Unknown]
  - Cellulitis [Unknown]
  - Hospice care [Unknown]
  - Death [Fatal]
  - Dyspnoea [Unknown]
  - Unevaluable event [Unknown]
  - Oxygen saturation decreased [Unknown]
  - Arthralgia [Unknown]
  - Diarrhoea [Unknown]
  - Lung disorder [Unknown]
  - Pulmonary congestion [Unknown]
  - Hernia [Unknown]
  - Dyspnoea exertional [Unknown]
  - Abdominal pain upper [Unknown]
  - Presyncope [Unknown]
  - Oxygen consumption increased [Unknown]
  - Gout [Unknown]
  - Hypoaesthesia [Unknown]
  - Productive cough [Unknown]
  - Swelling [Unknown]
  - Peripheral swelling [Unknown]
  - Constipation [Unknown]
  - Decreased appetite [Unknown]

NARRATIVE: CASE EVENT DATE: 2017
